FAERS Safety Report 22538176 (Version 3)
Quarter: 2023Q2

REPORT INFORMATION
  Report Type: Report from Study
  Country: KR (occurrence: KR)
  Receive Date: 20230608
  Receipt Date: 20230620
  Transmission Date: 20230721
  Serious: Yes (Life-Threatening, Hospitalization, Other)
  Sender: FDA-Public Use
  Company Number: KR-BRISTOL-MYERS SQUIBB COMPANY-2023-061389

PATIENT
  Age: 66 Year
  Sex: Male
  Weight: 56 kg

DRUGS (18)
  1. DARATUMUMAB [Suspect]
     Active Substance: DARATUMUMAB
     Indication: Plasma cell myeloma
     Route: 058
     Dates: start: 20230112, end: 20230112
  2. IBERDOMIDE [Concomitant]
     Active Substance: IBERDOMIDE
     Indication: Plasma cell myeloma
     Route: 048
     Dates: start: 20230112, end: 20230130
  3. DEXAMETHASONE [Concomitant]
     Active Substance: DEXAMETHASONE
     Indication: Plasma cell myeloma
     Route: 048
     Dates: start: 20230112, end: 20230112
  4. ACETAMINOPHEN [Concomitant]
     Active Substance: ACETAMINOPHEN
     Indication: Infusion related reaction
     Route: 048
     Dates: start: 20230410, end: 20230410
  5. ACYCLOVIR [Concomitant]
     Active Substance: ACYCLOVIR
     Indication: Herpes zoster
     Dosage: 400 MG
     Route: 048
     Dates: start: 20230112
  6. ALMAGEL [ALUMINIUM HYDROXIDE;ALUMINIUM PHOSPHATE;MAGNESIUM HYDROXIDE] [Concomitant]
     Indication: Abdominal pain upper
     Dosage: 15 ML?FREQUENCY : PRN
     Route: 048
     Dates: start: 20230309, end: 20230406
  7. ASPIRIN [Concomitant]
     Active Substance: ASPIRIN
     Indication: Thrombosis prophylaxis
     Dosage: 100 MG
     Route: 048
     Dates: start: 20230112
  8. CHLORPHENIRAMINE [Concomitant]
     Active Substance: CHLORPHENIRAMINE
     Indication: Infusion related reaction
     Dosage: 4 MG
     Route: 048
     Dates: start: 20230410, end: 20230410
  9. FILGRASTIM [Concomitant]
     Active Substance: FILGRASTIM
     Indication: Neutropenia
     Dosage: 300 UG
     Route: 058
     Dates: start: 20230406, end: 20230406
  10. MAGNESIUM OXIDE [Concomitant]
     Active Substance: MAGNESIUM OXIDE
     Indication: Adverse event
     Dosage: 500 MG
     Route: 048
     Dates: start: 20230410, end: 20230529
  11. MEGESTROL [Concomitant]
     Active Substance: MEGESTROL
     Indication: Decreased appetite
     Dosage: 625 MG
     Route: 048
     Dates: start: 20230302
  12. PEGTEOGRASTIM [Concomitant]
     Active Substance: PEGTEOGRASTIM
     Indication: Neutropenia
     Dosage: 6 MG
     Route: 048
     Dates: start: 20230407, end: 20230407
  13. SULFAMETHOXAZOLE\TRIMETHOPRIM [Concomitant]
     Active Substance: SULFAMETHOXAZOLE\TRIMETHOPRIM
     Indication: Pneumonia
     Dosage: 1 TABLET
     Route: 048
     Dates: start: 20230216
  14. TAMSULOSIN [Concomitant]
     Active Substance: TAMSULOSIN
     Indication: Benign prostatic hyperplasia
     Dosage: 0.2 MG
     Route: 048
     Dates: start: 20230209, end: 20230406
  15. ZOLPIDEM [Concomitant]
     Active Substance: ZOLPIDEM TARTRATE
     Indication: Insomnia
     Route: 048
     Dates: start: 20230209
  16. ZOLPIDEM [Concomitant]
     Active Substance: ZOLPIDEM TARTRATE
     Route: 065
     Dates: start: 20230515, end: 20230515
  17. CHLORHEXIDINE [Concomitant]
     Active Substance: CHLORHEXIDINE
     Indication: Prophylaxis
     Dosage: 12
     Route: 065
     Dates: start: 20230425
  18. CHLORHEXIDINE [Concomitant]
     Active Substance: CHLORHEXIDINE
     Indication: Stomatitis
     Dosage: 12
     Route: 061
     Dates: start: 20230430

REACTIONS (2)
  - Pneumonia [Not Recovered/Not Resolved]
  - Febrile neutropenia [Not Recovered/Not Resolved]

NARRATIVE: CASE EVENT DATE: 20230427
